FAERS Safety Report 7457483-2 (Version None)
Quarter: 2011Q2

REPORT INFORMATION
  Report Type: 
  Country: None (occurrence: None)
  Receive Date: 20110504
  Receipt Date: 20110420
  Transmission Date: 20111010
  Serious: Yes (Hospitalization)
  Sender: FDA-Public Use
  Company Number: TN-MYLANLABS-2011S1008449

PATIENT
  Age: 40 Year
  Sex: Male

DRUGS (1)
  1. AZATHIOPRINE [Suspect]
     Indication: PEMPHIGUS
     Dosage: 100MG DAILY
     Route: 065

REACTIONS (1)
  - HEPATITIS CHOLESTATIC [None]
